FAERS Safety Report 8350214-3 (Version None)
Quarter: 2012Q2

REPORT INFORMATION
  Report Type: 
  Country: None (occurrence: None)
  Receive Date: 20120510
  Receipt Date: 20120503
  Transmission Date: 20120825
  Serious: Yes (Life-Threatening, Hospitalization)
  Sender: FDA-Public Use
  Company Number: US-ROCHE-1054194

PATIENT
  Sex: Female
  Weight: 65.3 kg

DRUGS (5)
  1. LEUCOVORIN CALCIUM [Suspect]
     Indication: COLON CANCER
     Dosage: DATE OF MOST RECENT DOSE PRIOR TO SAE: 20/MAR/2012
     Dates: start: 20120131
  2. FLUOROURACIL [Suspect]
     Indication: COLON CANCER
     Dosage: DATE OF MOST RECENT DOSE PRIOR TO SAE: 20/MAR/2012
     Dates: start: 20120131
  3. FLUOROURACIL [Suspect]
  4. OXALIPLATIN [Suspect]
     Indication: COLON CANCER
     Dosage: DATE OF MOST RECENT DOSE PRIOR TO SAE: 20/MAR/2012
     Dates: start: 20120131
  5. AVASTIN [Suspect]
     Indication: COLON CANCER
     Dosage: DATE OF MOST RECENT DOSE PRIOR TO SAE: 20/MAR/2012
     Dates: start: 20120131

REACTIONS (1)
  - NEUTROPENIC COLITIS [None]
